FAERS Safety Report 18751707 (Version 2)
Quarter: 2021Q1

REPORT INFORMATION
  Report Type: Spontaneous
  Country: TR (occurrence: TR)
  Receive Date: 20210118
  Receipt Date: 20210129
  Transmission Date: 20210419
  Serious: Yes (Hospitalization, Other)
  Sender: FDA-Public Use
  Company Number: NVSC2021TR008284

PATIENT
  Age: 72 Year
  Sex: Male

DRUGS (2)
  1. VALAMOR [Suspect]
     Active Substance: RIBOCICLIB
     Indication: BREAST CANCER
     Dosage: 1 DF, TID (21 DAYS OF USAGE FOLLOWED BY 7 DAYS WITHOUT)
     Route: 048
  2. DEMENT [Concomitant]
     Indication: PRODUCT USED FOR UNKNOWN INDICATION
     Dosage: UNK (STARTED 2 YEARS AGO)
     Route: 065

REACTIONS (5)
  - Cerebral disorder [Not Recovered/Not Resolved]
  - COVID-19 [Recovered/Resolved]
  - Malignant neoplasm progression [Not Recovered/Not Resolved]
  - Drug ineffective [Not Recovered/Not Resolved]
  - Metastases to central nervous system [Not Recovered/Not Resolved]

NARRATIVE: CASE EVENT DATE: 202011
